FAERS Safety Report 9859583 (Version 7)
Quarter: 2014Q4

REPORT INFORMATION
  Report Type: Spontaneous
  Country: US (occurrence: US)
  Receive Date: 20140131
  Receipt Date: 20141208
  Transmission Date: 20150529
  Serious: Yes (Hospitalization, Disabling, Other)
  Sender: FDA-Public Use
  Company Number: US-009507513-1401USA013658

PATIENT
  Sex: Male
  Weight: 126.98 kg

DRUGS (3)
  1. JANUVIA [Suspect]
     Active Substance: SITAGLIPTIN PHOSPHATE
     Dosage: 100 MG, UNK
     Route: 048
     Dates: start: 20111202
  2. JANUVIA [Suspect]
     Active Substance: SITAGLIPTIN PHOSPHATE
     Indication: TYPE 2 DIABETES MELLITUS
     Dosage: UNK UNK, BID
     Route: 048
     Dates: start: 20091001, end: 20110930
  3. BYETTA [Suspect]
     Active Substance: EXENATIDE
     Indication: TYPE 2 DIABETES MELLITUS
     Dosage: UNK, BID
     Dates: start: 200902, end: 200910

REACTIONS (42)
  - Pancreatitis [Unknown]
  - Dyspepsia [Unknown]
  - Pollakiuria [Unknown]
  - Hypoglycaemia [Unknown]
  - Abdominal pain [Unknown]
  - Bursitis [Recovered/Resolved]
  - Diverticulum intestinal [Unknown]
  - Hypertensive cardiomyopathy [Unknown]
  - Abdominal pain upper [Unknown]
  - Night sweats [Unknown]
  - Insomnia [Unknown]
  - Discomfort [Unknown]
  - Incorrect dose administered [Unknown]
  - Intestinal polyp [Unknown]
  - Nightmare [Unknown]
  - Anxiety [Unknown]
  - Dry skin [Unknown]
  - Coronary artery disease [Unknown]
  - Depression [Unknown]
  - Hepatic steatosis [Unknown]
  - Urine flow decreased [Unknown]
  - Arthropod bite [Unknown]
  - Abdominal hernia [Unknown]
  - Adenocarcinoma pancreas [Unknown]
  - Pancreatitis [Recovered/Resolved]
  - Haemolysis [Unknown]
  - Feeling cold [Unknown]
  - Agitation [Unknown]
  - Muscle spasms [Unknown]
  - Insulin-requiring type 2 diabetes mellitus [Unknown]
  - Suicidal ideation [Unknown]
  - Cholelithiasis [Unknown]
  - Prostatism [Unknown]
  - Musculoskeletal disorder [Unknown]
  - Increased tendency to bruise [Unknown]
  - Paraesthesia [Unknown]
  - Osteoarthritis [Unknown]
  - Pancreaticoduodenectomy [Unknown]
  - Ileus [Unknown]
  - Gastrointestinal oedema [Unknown]
  - Diverticulitis [Unknown]
  - Drug ineffective [Unknown]

NARRATIVE: CASE EVENT DATE: 20091008
